FAERS Safety Report 18168875 (Version 5)
Quarter: 2021Q1

REPORT INFORMATION
  Report Type: Spontaneous
  Country: US (occurrence: US)
  Receive Date: 20200819
  Receipt Date: 20210322
  Transmission Date: 20210419
  Serious: Yes (Hospitalization)
  Sender: FDA-Public Use
  Company Number: US-PFIZER INC-2020319236

PATIENT
  Age: 69 Year
  Sex: Female

DRUGS (2)
  1. XELJANZ XR [Suspect]
     Active Substance: TOFACITINIB CITRATE
     Dosage: UNK
     Dates: start: 202007, end: 2020
  2. XELJANZ XR [Suspect]
     Active Substance: TOFACITINIB CITRATE
     Dosage: 11 MG
     Dates: start: 202103

REACTIONS (5)
  - Anaemia [Unknown]
  - Blood potassium increased [Unknown]
  - Diarrhoea [Recovered/Resolved]
  - Jaw disorder [Unknown]
  - Pain in jaw [Unknown]

NARRATIVE: CASE EVENT DATE: 2020
